FAERS Safety Report 25706940 (Version 1)
Quarter: 2025Q3

REPORT INFORMATION
  Report Type: Spontaneous
  Country: CA (occurrence: CA)
  Receive Date: 20250820
  Receipt Date: 20250820
  Transmission Date: 20251021
  Serious: Yes (Hospitalization, Other)
  Sender: COVIS PHARMA GMBH
  Company Number: CA-AMAGP-2025COV00367

PATIENT
  Age: 64 Year
  Sex: Female

DRUGS (8)
  1. ACLIDINIUM BROMIDE [Suspect]
     Active Substance: ACLIDINIUM BROMIDE
     Indication: Asthma
  2. ALBUTEROL SULFATE [Suspect]
     Active Substance: ALBUTEROL SULFATE
  3. NUCALA [Suspect]
     Active Substance: MEPOLIZUMAB
     Indication: Asthma
  4. SPIRONOLACTONE [Suspect]
     Active Substance: SPIRONOLACTONE
  5. SINGULAIR [Suspect]
     Active Substance: MONTELUKAST SODIUM
     Indication: Asthma
  6. ZENHALE [Suspect]
     Active Substance: FORMOTEROL FUMARATE\MOMETASONE FUROATE
     Indication: Asthma
  7. PREDNISONE [Suspect]
     Active Substance: PREDNISONE
     Indication: Asthma
  8. LASIX [Suspect]
     Active Substance: FUROSEMIDE

REACTIONS (11)
  - Asthma [Unknown]
  - Cardiac failure congestive [Unknown]
  - Hypersensitivity pneumonitis [Unknown]
  - Emotional distress [Unknown]
  - Dyspnoea [Unknown]
  - Weight increased [Unknown]
  - Crepitations [Unknown]
  - Rhonchi [Unknown]
  - Full blood count abnormal [Unknown]
  - Drug ineffective [Unknown]
  - Loss of personal independence in daily activities [Unknown]
